FAERS Safety Report 9554564 (Version 1)
Quarter: 2013Q3

REPORT INFORMATION
  Report Type: Spontaneous
  Country: GB (occurrence: GB)
  Receive Date: 20130925
  Receipt Date: 20130925
  Transmission Date: 20140515
  Serious: Yes (Other)
  Sender: FDA-Public Use
  Company Number: GB-MYLANLABS-2013S1020711

PATIENT
  Age: 62 Year
  Sex: Male
  Weight: 95 kg

DRUGS (7)
  1. IRINOTECAN [Suspect]
     Indication: PANCREATIC CARCINOMA
     Route: 042
     Dates: start: 20130318, end: 20130715
  2. OXALIPLATIN [Suspect]
     Indication: PANCREATIC CARCINOMA
     Route: 042
     Dates: start: 20130318, end: 20130715
  3. 5 FLUOROURACIL /00098801/ [Suspect]
     Indication: PANCREATIC CARCINOMA
     Route: 042
     Dates: start: 20130318, end: 20130717
  4. CITALOPRAM [Concomitant]
     Indication: PRODUCT USED FOR UNKNOWN INDICATION
  5. CODEINE PHOSPHATE [Concomitant]
     Indication: PRODUCT USED FOR UNKNOWN INDICATION
  6. CREON [Concomitant]
     Indication: PRODUCT USED FOR UNKNOWN INDICATION
  7. VALSARTAN [Concomitant]
     Indication: PRODUCT USED FOR UNKNOWN INDICATION

REACTIONS (3)
  - Confusional state [Recovered/Resolved]
  - Restlessness [Recovered/Resolved]
  - Weight decreased [Recovered/Resolved]
